FAERS Safety Report 7165995-4 (Version None)
Quarter: 2010Q4

REPORT INFORMATION
  Report Type: 
  Country: None (occurrence: None)
  Receive Date: 20101216
  Receipt Date: 20101207
  Transmission Date: 20110411
  Serious: No
  Sender: FDA-Public Use
  Company Number: US-BIOGENIDEC-2010BI043119

PATIENT
  Age: 30 Year
  Sex: Female

DRUGS (2)
  1. TYSABRI [Suspect]
     Indication: MULTIPLE SCLEROSIS
     Route: 042
     Dates: start: 20100506
  2. TYSABRI [Suspect]
     Route: 042
     Dates: start: 20080207, end: 20081028

REACTIONS (5)
  - DIZZINESS [None]
  - HEADACHE [None]
  - STRESS [None]
  - VERTIGO [None]
  - VISION BLURRED [None]
